FAERS Safety Report 5639031-2 (Version None)
Quarter: 2008Q1

REPORT INFORMATION
  Report Type: 
  Country: None (occurrence: None)
  Receive Date: 20080226
  Receipt Date: 20080219
  Transmission Date: 20080703
  Serious: Yes (Other)
  Sender: FDA-Public Use
  Company Number: CA-ASTRAZENECA-2008UW01370

PATIENT
  Age: 56 Year
  Sex: Male
  Weight: 68.2 kg

DRUGS (1)
  1. CRESTOR [Suspect]
     Indication: BLOOD CHOLESTEROL INCREASED
     Route: 048

REACTIONS (3)
  - AMYOTROPHIC LATERAL SCLEROSIS [None]
  - MYALGIA [None]
  - NEUROPATHY PERIPHERAL [None]
